FAERS Safety Report 14998479 (Version 2)
Quarter: 2018Q3

REPORT INFORMATION
  Report Type: Report from Study
  Country: None (occurrence: US)
  Receive Date: 20180612
  Receipt Date: 20180830
  Transmission Date: 20181010
  Serious: Yes (Hospitalization, Other)
  Sender: FDA-Public Use
  Company Number: US-ABBVIE-18K-163-2380027-00

PATIENT
  Age: 70 Year
  Sex: Female
  Weight: 57.2 kg

DRUGS (2)
  1. AMLODIPINE [Concomitant]
     Active Substance: AMLODIPINE BESYLATE
     Indication: PRODUCT USED FOR UNKNOWN INDICATION
     Dosage: EVERY DAY
  2. HUMIRA [Suspect]
     Active Substance: ADALIMUMAB
     Indication: RHEUMATOID ARTHRITIS
     Route: 058

REACTIONS (11)
  - Peripheral swelling [Unknown]
  - Disease complication [Unknown]
  - Immunodeficiency [Unknown]
  - Erythema [Unknown]
  - Streptococcal infection [Recovering/Resolving]
  - Atrial flutter [Unknown]
  - Toxic shock syndrome [Unknown]
  - Ingrowing nail [Unknown]
  - Abdominal distension [Unknown]
  - Cardiac disorder [Unknown]
  - Fluid retention [Unknown]
